FAERS Safety Report 13983049 (Version 1)
Quarter: 2017Q3

REPORT INFORMATION
  Report Type: Spontaneous
  Country: US (occurrence: US)
  Receive Date: 20170918
  Receipt Date: 20170918
  Transmission Date: 20171128
  Serious: Yes (Disabling)
  Sender: FDA-Public Use
  Company Number: None

PATIENT
  Sex: Female
  Weight: 63 kg

DRUGS (8)
  1. CHONDROITIN [Concomitant]
     Active Substance: CHONDROITIN
  2. MSN [Concomitant]
  3. MULTI [Concomitant]
  4. GLUCOSAMINE [Concomitant]
     Active Substance: GLUCOSAMINE
  5. EVENING PRIMROSE OIL [Concomitant]
     Active Substance: EVENING PRIMROSE OIL
  6. COENZYME Q10 [Concomitant]
     Active Substance: UBIDECARENONE
  7. CIPROFLAXIN [Suspect]
     Active Substance: CIPROFLOXACIN
     Indication: URINARY TRACT INFECTION
     Dates: start: 20120101, end: 20131123
  8. MAGNESIUM [Concomitant]
     Active Substance: MAGNESIUM

REACTIONS (3)
  - Bursitis [None]
  - Tendon rupture [None]
  - Epicondylitis [None]

NARRATIVE: CASE EVENT DATE: 20131104
